FAERS Safety Report 6760488 (Version 2)
Quarter: 2018Q3

REPORT INFORMATION
  Report Type: Spontaneous
  Country: FR (occurrence: FR)
  Receive Date: 20080916
  Receipt Date: 20180830
  Transmission Date: 20181010
  Serious: Yes (Hospitalization)
  Sender: FDA-Public Use
  Company Number: FR-PFIZER INC-2008074922

PATIENT
  Age: 66 Year
  Sex: Male
  Weight: 79.96 kg

DRUGS (11)
  1. CORTANCYL [Concomitant]
     Active Substance: PREDNISONE
     Dosage: 80 MG, DAILY
     Dates: start: 20080612, end: 20080615
  2. ENDOXAN [Concomitant]
     Active Substance: CYCLOPHOSPHAMIDE
     Dosage: 1436.5 MG, UNK
     Route: 042
     Dates: start: 20080611
  3. DAFALGAN [Suspect]
     Active Substance: ACETAMINOPHEN
     Dosage: 1000 MG, DAILY
     Route: 048
     Dates: start: 20080611, end: 20080611
  4. RITUXIMAB. [Concomitant]
     Active Substance: RITUXIMAB
     Dosage: 718.3 MG, UNK
     Route: 042
     Dates: start: 20080611
  5. SOLU?MEDROL [Concomitant]
     Active Substance: METHYLPREDNISOLONE SODIUM SUCCINATE
     Indication: PREMEDICATION
     Dosage: 120 MG, UNK
     Dates: start: 20080611
  6. GLUCOSE W/SODIUM CHLORIDE [Concomitant]
     Dosage: 2 L, UNK
  7. FASTURTEC [Suspect]
     Active Substance: RASBURICASE
     Dosage: 15 MG/ML, DAILY
     Route: 042
     Dates: start: 20080611, end: 20080611
  8. ONCOVIN [Concomitant]
     Active Substance: VINCRISTINE SULFATE
     Dosage: 2.7 MG, UNK
     Route: 042
     Dates: start: 20080611
  9. KYTRIL [Concomitant]
     Active Substance: GRANISETRON HYDROCHLORIDE
     Indication: PREMEDICATION
     Dosage: 2 MG, UNK
     Route: 048
     Dates: start: 20080611
  10. POLARAMINE RETARD [Concomitant]
     Indication: PREMEDICATION
     Dates: start: 20080611
  11. ADRIBLASTINE [Suspect]
     Active Substance: DOXORUBICIN
     Dosage: 95.8 MG, EVERY 3 WEEKS
     Route: 042
     Dates: start: 20080611, end: 20080611

REACTIONS (5)
  - Haemolytic anaemia [Recovered/Resolved with Sequelae]
  - Febrile bone marrow aplasia [Unknown]
  - Hemiplegia [Unknown]
  - Methaemoglobinaemia [Recovered/Resolved with Sequelae]
  - Ischaemic stroke [Unknown]

NARRATIVE: CASE EVENT DATE: 20080613
